FAERS Safety Report 4456211-2 (Version None)
Quarter: 2004Q3

REPORT INFORMATION
  Report Type: 
  Country: None (occurrence: None)
  Receive Date: 20040920
  Receipt Date: 20040909
  Transmission Date: 20050211
  Serious: Yes (Hospitalization)
  Sender: FDA-Public Use
  Company Number: 2004233041PT

PATIENT
  Age: 60 Year
  Sex: Female
  Weight: 74 kg

DRUGS (1)
  1. ARTHROTEC 50 (DICLOFENAC SODIUM, MISOPROSTOL) TABLET) [Suspect]
     Indication: OSTEOARTHRITIS
     Dosage: 50MG+0.2MG, TID, ORAL
     Route: 048
     Dates: start: 19990101, end: 19990101

REACTIONS (6)
  - DYSPNOEA [None]
  - FACE OEDEMA [None]
  - HOARSENESS [None]
  - STRIDOR [None]
  - URTICARIA GENERALISED [None]
  - WHEEZING [None]
